FAERS Safety Report 6714984-X (Version None)
Quarter: 2010Q2

REPORT INFORMATION
  Report Type: 
  Country: None (occurrence: None)
  Receive Date: 20100506
  Receipt Date: 20100506
  Transmission Date: 20101027
  Serious: Yes (Hospitalization)
  Sender: FDA-Public Use
  Company Number: None

PATIENT
  Age: 2 Year
  Sex: Male
  Weight: 13.1543 kg

DRUGS (1)
  1. MOTRIN [Suspect]
     Indication: IMMUNISATION
     Dosage: 1 TSP ONCE PO
     Route: 048

REACTIONS (7)
  - GENERALISED ERYTHEMA [None]
  - HYPERSENSITIVITY [None]
  - LIP SWELLING [None]
  - PRODUCT QUALITY ISSUE [None]
  - PRURITUS [None]
  - SWELLING FACE [None]
  - URTICARIA [None]
